FAERS Safety Report 9841291 (Version 2)
Quarter: 2014Q1

REPORT INFORMATION
  Report Type: Spontaneous
  Country: IT (occurrence: IT)
  Receive Date: 20140124
  Receipt Date: 20140124
  Transmission Date: 20141002
  Serious: Yes (Other)
  Sender: FDA-Public Use
  Company Number: PHHY2013IT135422

PATIENT
  Age: 67 Year
  Sex: Male

DRUGS (7)
  1. ATORVASTATIN [Suspect]
     Indication: PROPHYLAXIS
     Dosage: 1 DF, QD
     Route: 048
     Dates: start: 20131017
  2. AMLODIPINE [Suspect]
  3. DUOPLAVIN [Concomitant]
     Route: 048
  4. PANTOPRAZOLE [Concomitant]
  5. BISOPROLOL [Concomitant]
  6. RAMIPRIL [Concomitant]
  7. METFORMIN [Concomitant]

REACTIONS (2)
  - Tendon rupture [Not Recovered/Not Resolved]
  - Local swelling [Unknown]
